FAERS Safety Report 22598144 (Version 1)
Quarter: 2023Q2

REPORT INFORMATION
  Report Type: Spontaneous
  Country: US (occurrence: None)
  Receive Date: 20230614
  Receipt Date: 20230614
  Transmission Date: 20230721
  Serious: No
  Sender: FDA-Public Use
  Company Number: US-MDD US Operations-MDD202205-001090

PATIENT
  Age: 72 Year
  Sex: Male

DRUGS (1)
  1. APOKYN [Suspect]
     Active Substance: APOMORPHINE HYDROCHLORIDE
     Indication: Parkinson^s disease
     Dosage: 0.1 ML  AS STARTER DOSE AND TITRATE TO EFFECTIVE DOSE (MAX OF 0.6ML)
     Route: 058
     Dates: start: 202201

REACTIONS (1)
  - Nausea [Unknown]
